FAERS Safety Report 25648564 (Version 1)
Quarter: 2025Q3

REPORT INFORMATION
  Report Type: Report from Study
  Country: US (occurrence: US)
  Receive Date: 20250806
  Receipt Date: 20250806
  Transmission Date: 20251020
  Serious: Yes (Hospitalization, Other)
  Sender: ABBVIE
  Company Number: US-ABBVIE-6397723

PATIENT
  Age: 61 Year
  Sex: Female
  Weight: 53 kg

DRUGS (5)
  1. SKYRIZI [Suspect]
     Active Substance: RISANKIZUMAB-RZAA
     Indication: Crohn^s disease
     Route: 058
  2. SKYRIZI [Suspect]
     Active Substance: RISANKIZUMAB-RZAA
     Route: 058
     Dates: start: 2024, end: 2024
  3. SKYRIZI [Suspect]
     Active Substance: RISANKIZUMAB-RZAA
     Route: 058
     Dates: start: 2024
  4. SKYRIZI [Suspect]
     Active Substance: RISANKIZUMAB-RZAA
     Route: 058
     Dates: start: 2023
  5. PREDNISONE [Concomitant]
     Active Substance: PREDNISONE
     Indication: Product used for unknown indication

REACTIONS (18)
  - Dehydration [Recovering/Resolving]
  - Stoma site pain [Recovered/Resolved]
  - Palpitations [Not Recovered/Not Resolved]
  - Therapeutic product effect decreased [Not Recovered/Not Resolved]
  - Blood potassium increased [Recovered/Resolved]
  - Chills [Not Recovered/Not Resolved]
  - Pyrexia [Not Recovered/Not Resolved]
  - Medical device site fistula [Recovered/Resolved]
  - Blood magnesium decreased [Recovering/Resolving]
  - Blood sodium decreased [Recovering/Resolving]
  - Blood potassium decreased [Recovered/Resolved]
  - Crohn^s disease [Not Recovered/Not Resolved]
  - Asthenia [Not Recovered/Not Resolved]
  - Hypotension [Not Recovered/Not Resolved]
  - Hypophagia [Not Recovered/Not Resolved]
  - Blood electrolytes decreased [Unknown]
  - Pyrexia [Recovered/Resolved]
  - Crohn^s disease [Not Recovered/Not Resolved]

NARRATIVE: CASE EVENT DATE: 20240101
